FAERS Safety Report 8983267 (Version 1)
Quarter: 2012Q4

REPORT INFORMATION
  Report Type: 
  Country: FI (occurrence: FI)
  Receive Date: 20121224
  Receipt Date: 20121224
  Transmission Date: 20130627
  Serious: Yes (Other)
  Sender: FDA-Public Use
  Company Number: PHHY2012FI001569

PATIENT
  Age: 63 Year
  Sex: Female

DRUGS (3)
  1. GLIVEC [Suspect]
     Indication: CHRONIC MYELOID LEUKAEMIA
     Dosage: 400 mg per day
     Route: 048
  2. THYROXIN [Interacting]
     Indication: HYPOTHYROIDISM
     Dosage: UNK UKN, UNK
  3. CORTISONE [Suspect]
     Dosage: UNK UKN, UNK

REACTIONS (17)
  - Angiomyolipoma [Not Recovered/Not Resolved]
  - Choking sensation [Unknown]
  - Drug interaction [Unknown]
  - Secretion discharge [Not Recovered/Not Resolved]
  - Liver disorder [Not Recovered/Not Resolved]
  - Hyperthyroidism [Recovering/Resolving]
  - Chest pain [Unknown]
  - Vision blurred [Unknown]
  - Malaise [Unknown]
  - Headache [Unknown]
  - Dizziness [Unknown]
  - Palpitations [Recovering/Resolving]
  - Hot flush [Recovering/Resolving]
  - Musculoskeletal pain [Recovering/Resolving]
  - Myalgia [Recovering/Resolving]
  - Gastric disorder [Not Recovered/Not Resolved]
  - Muscle spasms [Not Recovered/Not Resolved]
